FAERS Safety Report 8333551-8 (Version None)
Quarter: 2012Q1

REPORT INFORMATION
  Report Type: 
  Country: None (occurrence: None)
  Receive Date: 20120328
  Receipt Date: 20110222
  Transmission Date: 20120608
  Serious: Yes (Other)
  Sender: FDA-Public Use
  Company Number: PHHY2011US16483

PATIENT

DRUGS (1)
  1. VALTURNA [Suspect]
     Indication: HYPERTENSION
     Dosage: , ORAL
     Route: 048

REACTIONS (3)
  - HYPERTENSION [None]
  - DIARRHOEA [None]
  - BLOOD PRESSURE SYSTOLIC INCREASED [None]
